FAERS Safety Report 9280679 (Version 1)
Quarter: 2013Q2

REPORT INFORMATION
  Report Type: Spontaneous
  Country: US (occurrence: US)
  Receive Date: 20130509
  Receipt Date: 20130509
  Transmission Date: 20140414
  Serious: No
  Sender: FDA-Public Use
  Company Number: US-PFIZER INC-2013140320

PATIENT
  Age: 44 Year
  Sex: Female

DRUGS (6)
  1. GEODON [Suspect]
     Dosage: UNK
  2. REGLAN [Suspect]
     Dosage: UNK
  3. HALDOL [Suspect]
     Dosage: UNK
  4. KEFLEX [Suspect]
     Dosage: UNK
  5. ZOLOFT [Concomitant]
     Dosage: 100 MG, ONCE EACH MORNING
  6. NORVASC [Concomitant]
     Dosage: UNK

REACTIONS (1)
  - Drug hypersensitivity [Unknown]
